FAERS Safety Report 9537781 (Version 1)
Quarter: 2013Q3

REPORT INFORMATION
  Report Type: Spontaneous
  Country: US (occurrence: US)
  Receive Date: 20130919
  Receipt Date: 20130919
  Transmission Date: 20140515
  Serious: Yes (Hospitalization)
  Sender: FDA-Public Use
  Company Number: US-B.I. PHARMACEUTICALS,INC./RIDGEFIELD-2013-BI-29221BP

PATIENT
  Sex: Male

DRUGS (2)
  1. JENTADUETO [Suspect]
     Indication: DIABETES MELLITUS
     Dosage: STRENGTH: 25/1000
     Dates: start: 20130604
  2. LISINOPRIL [Concomitant]
     Dosage: STRENGTH: 20/25

REACTIONS (1)
  - Hepatic failure [Unknown]
